FAERS Safety Report 24397269 (Version 1)
Quarter: 2024Q4

REPORT INFORMATION
  Report Type: Spontaneous
  Country: US (occurrence: US)
  Receive Date: 20241004
  Receipt Date: 20241004
  Transmission Date: 20250115
  Serious: No
  Sender: SANOFI AVENTIS
  Company Number: US-SANOFI-02230608

PATIENT
  Sex: Male

DRUGS (1)
  1. IMOGAM RABIES [Suspect]
     Active Substance: HUMAN RABIES VIRUS IMMUNE GLOBULIN
     Indication: Immunisation
     Dosage: UNK

REACTIONS (1)
  - Inappropriate schedule of product administration [Unknown]
